FAERS Safety Report 6771327-3 (Version None)
Quarter: 2010Q2

REPORT INFORMATION
  Report Type: 
  Country: None (occurrence: None)
  Receive Date: 20100616
  Receipt Date: 20100607
  Transmission Date: 20101027
  Serious: Yes (Other)
  Sender: FDA-Public Use
  Company Number: CA-ASTRAZENECA-2010SE27198

PATIENT
  Age: 80 Year
  Sex: Female
  Weight: 53.5 kg

DRUGS (3)
  1. CRESTOR [Suspect]
     Route: 048
  2. ALTACE [Concomitant]
     Route: 048
  3. ELTROXIN [Concomitant]
     Route: 048

REACTIONS (4)
  - BLINDNESS [None]
  - HYPOTENSION [None]
  - SYNCOPE [None]
  - VISUAL IMPAIRMENT [None]
